FAERS Safety Report 14560439 (Version 1)
Quarter: 2018Q1

REPORT INFORMATION
  Report Type: Spontaneous
  Country: US (occurrence: US)
  Receive Date: 20180222
  Receipt Date: 20180222
  Transmission Date: 20180509
  Serious: Yes (Hospitalization, Other)
  Sender: FDA-Public Use
  Company Number: US-BRISTOL-MYERS SQUIBB COMPANY-BMS-2018-014650

PATIENT
  Age: 64 Year
  Sex: Male
  Weight: 83.9 kg

DRUGS (3)
  1. HYDROCORT                          /00028602/ [Concomitant]
     Indication: PRODUCT USED FOR UNKNOWN INDICATION
     Dosage: UNK
     Route: 065
  2. ELIQUIS [Suspect]
     Active Substance: APIXABAN
     Indication: CEREBROVASCULAR ACCIDENT PROPHYLAXIS
     Dosage: 2.5 MG, BID
     Route: 048
  3. ELIQUIS [Suspect]
     Active Substance: APIXABAN
     Indication: PULMONARY EMBOLISM
     Dosage: 2.5 MG, QD
     Route: 048

REACTIONS (8)
  - Arthropathy [Unknown]
  - Inappropriate schedule of drug administration [Unknown]
  - Pulmonary embolism [Unknown]
  - Heart rate increased [Unknown]
  - Drug dose omission [Unknown]
  - Atrial flutter [Unknown]
  - Peripheral swelling [Unknown]
  - Atrial fibrillation [Unknown]

NARRATIVE: CASE EVENT DATE: 201802
